FAERS Safety Report 9055086 (Version 1)
Quarter: 2013Q1

REPORT INFORMATION
  Report Type: Spontaneous
  Country: US (occurrence: US)
  Receive Date: 20130206
  Receipt Date: 20130206
  Transmission Date: 20140127
  Serious: No
  Sender: FDA-Public Use
  Company Number: US-009507513-1302USA001613

PATIENT
  Age: 25 None
  Sex: Female
  Weight: 69.39 kg

DRUGS (3)
  1. IMPLANON [Suspect]
     Indication: CONTRACEPTION
     Dosage: UNK
     Dates: start: 20130129
  2. SUBOXONE [Concomitant]
  3. KLONOPIN [Concomitant]

REACTIONS (3)
  - Application site bruise [Unknown]
  - Application site pruritus [Unknown]
  - Device expulsion [Unknown]
